FAERS Safety Report 9319991 (Version 2)
Quarter: 2013Q3

REPORT INFORMATION
  Report Type: Spontaneous
  Country: ZA (occurrence: ZA)
  Receive Date: 20130530
  Receipt Date: 20130919
  Transmission Date: 20140515
  Serious: Yes (Other)
  Sender: FDA-Public Use
  Company Number: ZA-ELI_LILLY_AND_COMPANY-ZA201305008431

PATIENT
  Sex: Female
  Weight: 2.38 kg

DRUGS (4)
  1. HUMALOG 25% LISPRO, 75% NPL [Suspect]
     Indication: GESTATIONAL DIABETES
     Dosage: 19 IU, EACH MORNING
     Route: 064
  2. HUMALOG 25% LISPRO, 75% NPL [Suspect]
     Dosage: 16 IU, EACH EVENING
     Route: 064
  3. HUMALOG 25% LISPRO, 75% NPL [Suspect]
     Dosage: 15 IU, BID
     Route: 064
  4. HUMALOG 25% LISPRO, 75% NPL [Suspect]
     Dosage: 15 IU, BID
     Route: 063

REACTIONS (5)
  - Holoprosencephaly [Unknown]
  - Low birth weight baby [Unknown]
  - Malaise [Unknown]
  - Foetal exposure during pregnancy [Recovered/Resolved]
  - Exposure during breast feeding [Recovered/Resolved]
